FAERS Safety Report 5026779-6 (Version None)
Quarter: 2006Q2

REPORT INFORMATION
  Report Type: 
  Country: None (occurrence: None)
  Receive Date: 20060609
  Receipt Date: 20060531
  Transmission Date: 20061013
  Serious: Yes (Other)
  Sender: FDA-Public Use
  Company Number: GXKR2006FR02689

PATIENT
  Age: 38 Year
  Sex: Female

DRUGS (6)
  1. RIFAMPICIN [Suspect]
     Indication: DISSEMINATED TUBERCULOSIS
     Dosage: 9 MG/KG
     Dates: start: 20030501, end: 20030526
  2. ETHAMBUTOL HYDROCHLORIDE [Suspect]
     Indication: DISSEMINATED TUBERCULOSIS
     Dosage: 24 MG/KG
     Dates: start: 20030501, end: 20030829
  3. ISONIAZID [Suspect]
     Indication: DISSEMINATED TUBERCULOSIS
     Dosage: 3 MG/KG
     Dates: start: 20030501, end: 20030829
  4. PYRAZINAMIDE [Suspect]
     Indication: DISSEMINATED TUBERCULOSIS
     Dosage: 22 MG/KG, QD
     Dates: start: 20030501, end: 20030701
  5. MOXIFLOXACIN HCL [Suspect]
     Dosage: 400 MG, QD
     Dates: start: 20030526
  6. RIFABUTIN (RIFABUTIN) [Concomitant]

REACTIONS (4)
  - DRUG HYPERSENSITIVITY [None]
  - OPTIC NEURITIS [None]
  - PAPILLOEDEMA [None]
  - VISUAL FIELD DEFECT [None]
